FAERS Safety Report 6813672-9 (Version None)
Quarter: 2010Q3

REPORT INFORMATION
  Report Type: 
  Country: None (occurrence: None)
  Receive Date: 20100701
  Receipt Date: 20100628
  Transmission Date: 20110219
  Serious: Yes (Life-Threatening)
  Sender: FDA-Public Use
  Company Number: CA-ASTRAZENECA-2010SE30335

PATIENT
  Age: 72 Year
  Sex: Female

DRUGS (6)
  1. ATACAND [Suspect]
     Route: 048
  2. ELMIRON [Concomitant]
  3. MULTIVITAMINES [Concomitant]
  4. PARIET [Concomitant]
  5. PREMARIN [Concomitant]
  6. VITAMIN D [Concomitant]

REACTIONS (18)
  - AGORAPHOBIA [None]
  - BLOOD PRESSURE DECREASED [None]
  - CHEST PAIN [None]
  - CONFUSIONAL STATE [None]
  - COORDINATION ABNORMAL [None]
  - COUGH [None]
  - DIARRHOEA [None]
  - DIZZINESS [None]
  - DYSPNOEA [None]
  - FALL [None]
  - HEADACHE [None]
  - MENTAL IMPAIRMENT [None]
  - MOUTH INJURY [None]
  - PALPITATIONS [None]
  - SOCIAL FEAR [None]
  - SYNCOPE [None]
  - THROAT IRRITATION [None]
  - VOMITING [None]
